FAERS Safety Report 24887754 (Version 1)
Quarter: 2025Q1

REPORT INFORMATION
  Report Type: Report from Study
  Country: US (occurrence: US)
  Receive Date: 20250127
  Receipt Date: 20250127
  Transmission Date: 20250409
  Serious: Yes (Other)
  Sender: ABBVIE
  Company Number: US-ABBVIE-6099275

PATIENT
  Sex: Male

DRUGS (1)
  1. HUMIRA [Suspect]
     Active Substance: ADALIMUMAB
     Indication: Ankylosing spondylitis
     Route: 058
     Dates: start: 20160912

REACTIONS (10)
  - Cerebral haemorrhage [Unknown]
  - Subdural haematoma [Not Recovered/Not Resolved]
  - Headache [Not Recovered/Not Resolved]
  - Illness [Not Recovered/Not Resolved]
  - Respiratory syncytial virus infection [Unknown]
  - Memory impairment [Unknown]
  - Speech disorder developmental [Unknown]
  - Blood glucose decreased [Unknown]
  - Pseudostroke [Unknown]
  - Procedural complication [Unknown]
